FAERS Safety Report 5017857-6 (Version None)
Quarter: 2006Q2

REPORT INFORMATION
  Report Type: 
  Country: None (occurrence: None)
  Receive Date: 20060605
  Receipt Date: 20060529
  Transmission Date: 20061013
  Serious: Yes (Hospitalization)
  Sender: FDA-Public Use
  Company Number: BR-BRISTOL-MYERS SQUIBB COMPANY-13392469

PATIENT
  Age: 69 Year
  Sex: Male
  Weight: 80 kg

DRUGS (3)
  1. TEQUIN [Suspect]
     Indication: PYREXIA
  2. TEQUIN [Suspect]
     Indication: PNEUMONIA
  3. NORVASC [Concomitant]
     Indication: HYPERTENSION

REACTIONS (5)
  - DYSPNOEA [None]
  - ERYTHEMA [None]
  - INFARCTION [None]
  - PULMONARY EMBOLISM [None]
  - RASH [None]
